FAERS Safety Report 8905224 (Version 2)
Quarter: 2013Q1

REPORT INFORMATION
  Report Type: Report from Study
  Country: BR (occurrence: BR)
  Receive Date: 20121109
  Receipt Date: 20130104
  Transmission Date: 20140127
  Serious: Yes (Hospitalization)
  Sender: FDA-Public Use
  Company Number: BR-AMGEN-BRACT2012071903

PATIENT
  Age: 83 Year
  Sex: Female

DRUGS (4)
  1. DENOSUMAB [Suspect]
     Indication: OSTEOPOROSIS POSTMENOPAUSAL
     Dosage: 60 MG, Q6MO
     Route: 058
     Dates: start: 20050516
  2. GALANTAMINE [Concomitant]
     Indication: DEMENTIA ALZHEIMER^S TYPE
  3. CALCIUM PHOSPHATE W/ VITAMIN D NOS [Concomitant]
  4. AMLODIPINE [Concomitant]
     Indication: HYPERTENSION

REACTIONS (2)
  - Ulcer [Recovering/Resolving]
  - Erysipelas [Recovered/Resolved]
